FAERS Safety Report 23180538 (Version 1)
Quarter: 2023Q4

REPORT INFORMATION
  Report Type: Report from Study
  Country: US (occurrence: US)
  Receive Date: 20231114
  Receipt Date: 20231114
  Transmission Date: 20240109
  Serious: Yes (Hospitalization)
  Sender: FDA-Public Use
  Company Number: US-ABBVIE-5491439

PATIENT
  Sex: Female

DRUGS (3)
  1. RINVOQ [Suspect]
     Active Substance: UPADACITINIB
     Indication: Crohn^s disease
     Dosage: LAST ADMIN DATE:2023,FORM STRENGTH:30 MG
     Route: 048
     Dates: start: 202303
  2. RINVOQ [Suspect]
     Active Substance: UPADACITINIB
     Indication: Crohn^s disease
     Dosage: FORM STRENGTH:30 MG??FIRST ADMIN DATE: 2023
     Route: 048
     Dates: end: 20231017
  3. RINVOQ [Suspect]
     Active Substance: UPADACITINIB
     Indication: Crohn^s disease
     Dosage: FORM STRENGTH:30 MG
     Route: 048
     Dates: start: 202307, end: 202308

REACTIONS (4)
  - Haemangioma of bone [Unknown]
  - Pain [Unknown]
  - Crohn^s disease [Unknown]
  - Constipation [Unknown]

NARRATIVE: CASE EVENT DATE: 20230101
